FAERS Safety Report 5823098-2 (Version None)
Quarter: 2008Q3

REPORT INFORMATION
  Report Type: 
  Country: None (occurrence: None)
  Receive Date: 20080725
  Receipt Date: 20070806
  Transmission Date: 20090109
  Serious: No
  Sender: FDA-Public Use
  Company Number: US-AMGEN-KDL238170

PATIENT
  Sex: Female

DRUGS (8)
  1. PROCRIT [Suspect]
     Indication: RENAL FAILURE CHRONIC
     Dates: start: 19990101
  2. HYZAAR [Suspect]
  3. COREG [Suspect]
  4. VYTORIN [Suspect]
  5. DIGOXIN [Suspect]
  6. UNSPECIFIED THYROID MEDICATION [Concomitant]
  7. UNSPECIFIED MEDICATION [Concomitant]
  8. ASPIRIN [Concomitant]

REACTIONS (3)
  - ALOPECIA [None]
  - INCREASED TENDENCY TO BRUISE [None]
  - IRON METABOLISM DISORDER [None]
